FAERS Safety Report 7226132-0 (Version None)
Quarter: 2011Q1

REPORT INFORMATION
  Report Type: 
  Country: None (occurrence: None)
  Receive Date: 20110114
  Receipt Date: 20090407
  Transmission Date: 20110831
  Serious: Yes (Hospitalization)
  Sender: FDA-Public Use
  Company Number: PHHY2009FR13217

PATIENT
  Age: 77 Year

DRUGS (1)
  1. COTAREG [Suspect]
     Dosage: 160 MG/12.5 MG TABLET DAILY
     Dates: start: 20040101, end: 20080301

REACTIONS (2)
  - PANCREATITIS ACUTE [None]
  - LIPASE INCREASED [None]
